FAERS Safety Report 7606125-1 (Version None)
Quarter: 2011Q3

REPORT INFORMATION
  Report Type: 
  Country: None (occurrence: None)
  Receive Date: 20110713
  Receipt Date: 20110706
  Transmission Date: 20111222
  Serious: Yes (Other)
  Sender: FDA-Public Use
  Company Number: US-NOVOPROD-331353

PATIENT
  Sex: Female
  Weight: 118.37 kg

DRUGS (7)
  1. GLUCOPHAGE [Concomitant]
     Indication: TYPE 2 DIABETES MELLITUS
     Dosage: 1000 MG, BID
     Route: 048
  2. LOPID [Concomitant]
     Indication: BLOOD TRIGLYCERIDES INCREASED
     Dosage: 300 MG, QD
     Route: 048
  3. LOPRESSOR [Concomitant]
     Indication: HYPERTENSION
     Dosage: 1/2 TAB IN AM AND 1/2 TAB IN PM
     Route: 048
  4. VICTOZA [Suspect]
     Dosage: 1.2 MG, QD
     Route: 058
  5. PLAVIX [Concomitant]
     Indication: PRODUCT USED FOR UNKNOWN INDICATION
     Dosage: 75 MG, QD
     Route: 048
  6. SIMVASTATIN [Concomitant]
     Indication: BLOOD CHOLESTEROL INCREASED
     Dosage: 40 MG, QD
     Route: 048
  7. VICTOZA [Suspect]
     Indication: TYPE 2 DIABETES MELLITUS
     Dosage: 0.6 MG, QD
     Route: 058
     Dates: start: 20110601

REACTIONS (8)
  - BLOOD GLUCOSE INCREASED [None]
  - HEADACHE [None]
  - DIARRHOEA [None]
  - HYPOTENSION [None]
  - WEIGHT DECREASED [None]
  - ANAEMIA [None]
  - MUSCLE SPASMS [None]
  - NAUSEA [None]
